FAERS Safety Report 19968831 (Version 1)
Quarter: 2021Q4

REPORT INFORMATION
  Report Type: Spontaneous
  Country: US (occurrence: US)
  Receive Date: 20211019
  Receipt Date: 20211019
  Transmission Date: 20220303
  Serious: Yes (Other)
  Sender: FDA-Public Use
  Company Number: None

PATIENT
  Age: 18 Year
  Sex: Male
  Weight: 105.75 kg

DRUGS (2)
  1. TINACTIN [Suspect]
     Active Substance: TOLNAFTATE
     Indication: Tinea pedis
     Dosage: ?          OTHER ROUTE:SPRAYED IN SHOES
  2. TINACTIN [Suspect]
     Active Substance: TOLNAFTATE
     Indication: Skin papilloma

REACTIONS (3)
  - Application site dryness [None]
  - Neoplasm skin [None]
  - Neoplasm progression [None]

NARRATIVE: CASE EVENT DATE: 20210415
